FAERS Safety Report 14566673 (Version 1)
Quarter: 2018Q1

REPORT INFORMATION
  Report Type: Spontaneous
  Country: US (occurrence: US)
  Receive Date: 20180222
  Receipt Date: 20180222
  Transmission Date: 20180509
  Serious: Yes (Disabling, Other)
  Sender: FDA-Public Use
  Company Number: None

PATIENT
  Age: 62 Year
  Sex: Female
  Weight: 104.4 kg

DRUGS (17)
  1. MORPHINE [Concomitant]
     Active Substance: MORPHINE
  2. AMITRIPTYLINE [Concomitant]
     Active Substance: AMITRIPTYLINE
  3. IRON [Concomitant]
     Active Substance: IRON
  4. VITAMIN B12 [Concomitant]
     Active Substance: CYANOCOBALAMIN
  5. OXYCODONE-ACETAMINOPHEN [Concomitant]
     Active Substance: ACETAMINOPHEN\OXYCODONE HYDROCHLORIDE
  6. ROSUVASTATIN CALCIUM. [Concomitant]
     Active Substance: ROSUVASTATIN CALCIUM
  7. CLOTRIMAZOLE/BETAMETH CREAM [Concomitant]
  8. COQ10 [Concomitant]
     Active Substance: UBIDECARENONE
  9. GINGER ROOT [Concomitant]
     Active Substance: GINGER
  10. PREDNISONE. [Concomitant]
     Active Substance: PREDNISONE
  11. TUMERIC [Concomitant]
     Active Substance: HERBALS\TURMERIC
  12. BUTRANS [Suspect]
     Active Substance: BUPRENORPHINE
     Indication: ARTHRITIS
     Dosage: ?          OTHER STRENGTH:MCG;QUANTITY:4 PATCH(ES);OTHER FREQUENCY:1 PER WEEK;?
     Route: 062
     Dates: start: 20171124, end: 20180202
  13. BLACK COHOSH [Concomitant]
     Active Substance: BLACK COHOSH
  14. CRANBERRY. [Concomitant]
     Active Substance: CRANBERRY
  15. MULTIVITAMIN FOR 50+ [Concomitant]
  16. CALCIUM [Concomitant]
     Active Substance: CALCIUM
  17. VITAMIN D [Concomitant]
     Active Substance: CHOLECALCIFEROL

REACTIONS (5)
  - Chemical burn [None]
  - Cellulitis [None]
  - Application site pruritus [None]
  - Application site irritation [None]
  - Staphylococcal infection [None]

NARRATIVE: CASE EVENT DATE: 20180131
